FAERS Safety Report 5224976-8 (Version None)
Quarter: 2007Q1

REPORT INFORMATION
  Report Type: 
  Country: None (occurrence: None)
  Receive Date: 20070126
  Receipt Date: 20070115
  Transmission Date: 20070707
  Serious: Yes (Hospitalization)
  Sender: FDA-Public Use
  Company Number: HQWYE730717JAN07

PATIENT
  Age: 36 Year
  Sex: Male

DRUGS (2)
  1. EFFEXOR [Suspect]
     Dosage: 1075 MG (OVERDOSE AMOUNT)
     Dates: start: 20020701, end: 20020701
  2. CITALOPRAM HYDROBROMIDE [Suspect]
     Dosage: 240 MG (OVERDOSE AMOUNT)
     Dates: start: 20020701, end: 20020701

REACTIONS (4)
  - BRADYPNOEA [None]
  - MIOSIS [None]
  - MULTIPLE DRUG OVERDOSE [None]
  - SOMNOLENCE [None]
